FAERS Safety Report 25133527 (Version 1)
Quarter: 2025Q1

REPORT INFORMATION
  Report Type: Spontaneous
  Country: ES (occurrence: ES)
  Receive Date: 20250328
  Receipt Date: 20250328
  Transmission Date: 20250408
  Serious: Yes (Hospitalization, Other)
  Sender: AMGEN
  Company Number: ES-AMGEN-ESPSP2025055262

PATIENT

DRUGS (2)
  1. XGEVA [Suspect]
     Active Substance: DENOSUMAB
     Indication: Pleural mesothelioma malignant
     Route: 065
  2. BEVACIZUMAB [Suspect]
     Active Substance: BEVACIZUMAB
     Indication: Pleural mesothelioma malignant
     Route: 065

REACTIONS (38)
  - Thrombocytopenia [Unknown]
  - Neutropenia [Unknown]
  - Leukopenia [Unknown]
  - Neuropathy peripheral [Unknown]
  - Unevaluable event [Unknown]
  - Insomnia [Unknown]
  - Off label use [Unknown]
  - Stress [Unknown]
  - Anxiety [Unknown]
  - Cough [Unknown]
  - Dyspnoea [Unknown]
  - Weight decreased [Unknown]
  - Anaemia [Unknown]
  - Chest pain [Unknown]
  - Fatigue [Unknown]
  - Nausea [Unknown]
  - Decreased appetite [Unknown]
  - Constipation [Unknown]
  - Vomiting [Unknown]
  - Ageusia [Unknown]
  - Alopecia [Unknown]
  - Mucosal inflammation [Unknown]
  - Oral pain [Unknown]
  - Depression [Unknown]
  - Dry skin [Unknown]
  - Dry mouth [Unknown]
  - Diarrhoea [Unknown]
  - Pyrexia [Unknown]
  - Influenza like illness [Unknown]
  - Myalgia [Unknown]
  - Rash [Unknown]
  - Arthralgia [Unknown]
  - Dyspnoea [Unknown]
  - Fluid retention [Unknown]
  - Abdominal pain [Unknown]
  - Headache [Unknown]
  - Mood altered [Unknown]
  - Infection [Unknown]
